FAERS Safety Report 15353209 (Version 7)
Quarter: 2020Q1

REPORT INFORMATION
  Report Type: Report from Study
  Country: None (occurrence: US)
  Receive Date: 20180905
  Receipt Date: 20200320
  Transmission Date: 20200409
  Serious: Yes (Hospitalization, Other)
  Sender: FDA-Public Use
  Company Number: CA-ABBVIE-18K-028-2472717-00

PATIENT
  Sex: Female

DRUGS (3)
  1. HUMIRA [Suspect]
     Active Substance: ADALIMUMAB
     Indication: PSORIATIC ARTHROPATHY
     Route: 058
     Dates: start: 20101028
  2. HUMIRA [Suspect]
     Active Substance: ADALIMUMAB
     Route: 058
  3. METHOTREXATE. [Concomitant]
     Active Substance: METHOTREXATE
     Indication: PRODUCT USED FOR UNKNOWN INDICATION

REACTIONS (18)
  - Asthenia [Recovering/Resolving]
  - Rhinorrhoea [Not Recovered/Not Resolved]
  - Sneezing [Not Recovered/Not Resolved]
  - Anxiety [Not Recovered/Not Resolved]
  - Abdominal distension [Not Recovered/Not Resolved]
  - Polymenorrhoea [Not Recovered/Not Resolved]
  - Focal nodular hyperplasia [Not Recovered/Not Resolved]
  - Psoriasis [Recovering/Resolving]
  - Nasopharyngitis [Not Recovered/Not Resolved]
  - Benign hepatic neoplasm [Not Recovered/Not Resolved]
  - Anaemia [Not Recovered/Not Resolved]
  - Blood lactic acid increased [Unknown]
  - Dysmenorrhoea [Not Recovered/Not Resolved]
  - Metabolic acidosis [Recovering/Resolving]
  - Hot flush [Recovering/Resolving]
  - Dizziness [Recovering/Resolving]
  - Joint range of motion decreased [Not Recovered/Not Resolved]
  - Muscular weakness [Not Recovered/Not Resolved]

NARRATIVE: CASE EVENT DATE: 2012
